FAERS Safety Report 7528407-4 (Version None)
Quarter: 2011Q2

REPORT INFORMATION
  Report Type: 
  Country: None (occurrence: None)
  Receive Date: 20110607
  Receipt Date: 20101215
  Transmission Date: 20111010
  Serious: No
  Sender: FDA-Public Use
  Company Number: US-ASTRAZENECA-2011SE01045

PATIENT
  Age: 67 Year
  Sex: Male

DRUGS (3)
  1. SUPPLEMENTS [Concomitant]
  2. PRILOSEC OTC [Suspect]
     Route: 048
     Dates: start: 20070101
  3. VITAMINS /90003601/ [Concomitant]

REACTIONS (2)
  - INCORRECT DRUG ADMINISTRATION DURATION [None]
  - ERECTILE DYSFUNCTION [None]
